FAERS Safety Report 9175874 (Version 3)
Quarter: 2013Q2

REPORT INFORMATION
  Report Type: Report from Study
  Country: US (occurrence: US)
  Receive Date: 20130320
  Receipt Date: 20130416
  Transmission Date: 20140414
  Serious: Yes (Death, Hospitalization, Other)
  Sender: FDA-Public Use
  Company Number: US-ACTELION-A-US2012-73861

PATIENT
  Age: 50 Year
  Sex: Male

DRUGS (5)
  1. VENTAVIS [Suspect]
     Indication: PULMONARY ARTERIAL HYPERTENSION
     Dosage: 5 MCG, X6-9/DAY
     Route: 055
     Dates: start: 200901, end: 201303
  2. TRACLEER [Suspect]
     Indication: PULMONARY ARTERIAL HYPERTENSION
     Dosage: 125 MG, BID
     Route: 048
     Dates: start: 2001, end: 20130402
  3. SILDENAFIL [Concomitant]
  4. COUMADIN [Concomitant]
  5. REMODULIN [Concomitant]

REACTIONS (10)
  - Cardiogenic shock [Fatal]
  - Renal failure acute [Fatal]
  - Right ventricular failure [Fatal]
  - Pulmonary arterial hypertension [Fatal]
  - Atrial flutter [Recovering/Resolving]
  - Cardiac ablation [Recovering/Resolving]
  - Right ventricular dysfunction [Recovering/Resolving]
  - Weight increased [Recovering/Resolving]
  - Fluid overload [Not Recovered/Not Resolved]
  - Cardiac failure [Recovering/Resolving]
